FAERS Safety Report 6909084-X (Version None)
Quarter: 2010Q3

REPORT INFORMATION
  Report Type: 
  Country: None (occurrence: None)
  Receive Date: 20100805
  Receipt Date: 20100726
  Transmission Date: 20110219
  Serious: Yes (Other)
  Sender: FDA-Public Use
  Company Number: US-JNJFOC-20100702038

PATIENT
  Sex: Female
  Weight: 41.73 kg

DRUGS (10)
  1. REMICADE [Suspect]
     Indication: RHEUMATOID ARTHRITIS
     Route: 042
  2. REMICADE [Suspect]
     Route: 042
  3. PREDNISONE [Concomitant]
     Indication: RHEUMATOID ARTHRITIS
  4. ACTONEL [Concomitant]
     Indication: OSTEOPOROSIS
  5. CALCIUM 600+D [Concomitant]
     Indication: OSTEOPOROSIS
  6. LISINOPRIL [Concomitant]
     Indication: HYPERTENSION
  7. TOPROL-XL [Concomitant]
     Indication: HYPERTENSION
  8. HYDROCHLOROTHIAZIDE [Concomitant]
     Indication: HYPERTENSION
  9. ULTRAM ER [Concomitant]
     Indication: PAIN
  10. VESICARE [Concomitant]
     Indication: URINARY INCONTINENCE

REACTIONS (3)
  - LYMPHADENOPATHY [None]
  - MUSCULOSKELETAL PAIN [None]
  - PAIN [None]
